FAERS Safety Report 15715076 (Version 1)
Quarter: 2018Q4

REPORT INFORMATION
  Report Type: Spontaneous
  Country: US (occurrence: US)
  Receive Date: 20181212
  Receipt Date: 20181212
  Transmission Date: 20190205
  Serious: Yes (Other)
  Sender: FDA-Public Use
  Company Number: PHEH2018US051269

PATIENT
  Sex: Female

DRUGS (5)
  1. ILEVRO [Suspect]
     Active Substance: NEPAFENAC
     Indication: PRODUCT USED FOR UNKNOWN INDICATION
     Dosage: 1 GTT, QD
     Route: 047
     Dates: start: 20181016
  2. ILEVRO [Suspect]
     Active Substance: NEPAFENAC
     Dosage: 1 GTT, QD
     Route: 047
     Dates: start: 20181120, end: 20181203
  3. LATANOPROST. [Concomitant]
     Active Substance: LATANOPROST
     Indication: PRODUCT USED FOR UNKNOWN INDICATION
     Route: 065
  4. FISH OIL [Concomitant]
     Active Substance: FISH OIL
     Indication: PRODUCT USED FOR UNKNOWN INDICATION
     Route: 065
  5. RESTASIS [Concomitant]
     Active Substance: CYCLOSPORINE
     Indication: PRODUCT USED FOR UNKNOWN INDICATION
     Route: 065

REACTIONS (12)
  - Peripheral swelling [Unknown]
  - Pharyngeal haemorrhage [Unknown]
  - Headache [Unknown]
  - Swelling [Unknown]
  - Tongue ulceration [Unknown]
  - Swollen tongue [Unknown]
  - Dysphonia [Unknown]
  - Rhinorrhoea [Unknown]
  - Sneezing [Unknown]
  - Cough [Not Recovered/Not Resolved]
  - Vaginal haemorrhage [Unknown]
  - Swelling face [Unknown]
